FAERS Safety Report 5584128-9 (Version None)
Quarter: 2008Q1

REPORT INFORMATION
  Report Type: 
  Country: None (occurrence: None)
  Receive Date: 20080108
  Receipt Date: 20071228
  Transmission Date: 20080703
  Serious: Yes (Disabling, Other)
  Sender: FDA-Public Use
  Company Number: GB-AMGEN-US257632

PATIENT
  Sex: Female
  Weight: 80 kg

DRUGS (6)
  1. ENBREL [Suspect]
     Indication: RHEUMATOID ARTHRITIS
     Route: 058
     Dates: start: 20070706, end: 20071116
  2. METHOTREXATE [Suspect]
     Dosage: UNKNOWN
     Dates: start: 20070101, end: 20070101
  3. AMLODIPINE [Concomitant]
     Dosage: UNKNOWN
  4. PARACETAMOL [Concomitant]
     Dosage: UNKNOWN
  5. ATORVASTATIN [Concomitant]
     Dosage: UNKNOWN
  6. ACETYLSALICYLIC ACID SRT [Concomitant]
     Dosage: UNKNOWN

REACTIONS (2)
  - BREAST CANCER STAGE II [None]
  - METASTASES TO BONE [None]
